FAERS Safety Report 7419294-3 (Version None)
Quarter: 2011Q2

REPORT INFORMATION
  Report Type: 
  Country: None (occurrence: None)
  Receive Date: 20110415
  Receipt Date: 20110412
  Transmission Date: 20111010
  Serious: Yes (Other)
  Sender: FDA-Public Use
  Company Number: CZ-ABBOTT-11P-217-0709227-00

PATIENT
  Sex: Male
  Weight: 105 kg

DRUGS (3)
  1. LOKREN [Concomitant]
     Indication: HYPERTENSION
  2. HUMIRA [Suspect]
     Indication: ANKYLOSING SPONDYLITIS
     Route: 058
     Dates: end: 20101203
  3. HUMIRA [Suspect]
     Dates: start: 20110311

REACTIONS (5)
  - PROLACTINOMA [None]
  - VARICOSE VEIN [None]
  - HEADACHE [None]
  - BACK PAIN [None]
  - NEOPLASM [None]
